FAERS Safety Report 4614110-7 (Version None)
Quarter: 2005Q1

REPORT INFORMATION
  Report Type: 
  Country: None (occurrence: None)
  Receive Date: 20050316
  Receipt Date: 20050301
  Transmission Date: 20050727
  Serious: Yes (Other)
  Sender: FDA-Public Use
  Company Number: JP_050305993

PATIENT
  Age: 76 Year
  Sex: Female

DRUGS (3)
  1. EVISTA [Suspect]
     Indication: OSTEOPOROSIS POSTMENOPAUSAL
  2. WARFARIN POTASSIUM [Concomitant]
  3. PRIMPERAN ELIXIR [Concomitant]

REACTIONS (1)
  - CEREBRAL INFARCTION [None]
